FAERS Safety Report 6154345-8 (Version None)
Quarter: 2009Q2

REPORT INFORMATION
  Report Type: 
  Country: None (occurrence: None)
  Receive Date: 20090414
  Receipt Date: 20090112
  Transmission Date: 20091009
  Serious: No
  Sender: FDA-Public Use
  Company Number: A0761932A

PATIENT
  Age: 58 Year
  Sex: Male
  Weight: 112.7 kg

DRUGS (7)
  1. REQUIP XL [Suspect]
     Indication: DRUG USE FOR UNKNOWN INDICATION
     Dosage: 2MG AT NIGHT
     Route: 065
     Dates: start: 20080923, end: 20081010
  2. CELEBREX [Concomitant]
     Dosage: 200MG PER DAY
     Route: 048
     Dates: start: 19960101
  3. ASPIRIN [Concomitant]
     Dosage: 325MG PER DAY
     Route: 048
     Dates: start: 19980101
  4. NORVASC [Concomitant]
     Dosage: 5MG PER DAY
     Route: 048
     Dates: start: 19700101
  5. VYTORIN [Concomitant]
     Route: 048
     Dates: start: 20040901
  6. CARBIDOPA [Concomitant]
     Route: 048
     Dates: start: 20070514
  7. METFORMIN HYDROCHLORIDE [Concomitant]
     Dosage: 500MG PER DAY
     Route: 048
     Dates: start: 20070706

REACTIONS (2)
  - NAUSEA [None]
  - NIGHTMARE [None]
